FAERS Safety Report 8327496-7 (Version None)
Quarter: 2012Q2

REPORT INFORMATION
  Report Type: 
  Country: None (occurrence: None)
  Receive Date: 20120502
  Receipt Date: 20120424
  Transmission Date: 20120825
  Serious: Yes (Hospitalization, Other)
  Sender: FDA-Public Use
  Company Number: US-BAYER-2011-079215

PATIENT
  Age: 21 Year
  Sex: Female
  Weight: 104.31 kg

DRUGS (3)
  1. YAZ [Suspect]
     Indication: MENSTRUATION IRREGULAR
     Dosage: UNK
     Dates: start: 20071001, end: 20080201
  2. TYLENOL (CAPLET) [Concomitant]
     Dosage: 200 MG, BID
     Dates: start: 20080205, end: 20080210
  3. NAPROXEN (ALEVE) [Concomitant]
     Dosage: 200 MG, BID
     Route: 048
     Dates: start: 20080205, end: 20080210

REACTIONS (4)
  - CEREBROVASCULAR ACCIDENT [None]
  - PAIN [None]
  - MOTOR DYSFUNCTION [None]
  - GALLBLADDER NON-FUNCTIONING [None]
